FAERS Safety Report 7631984-6 (Version None)
Quarter: 2011Q3

REPORT INFORMATION
  Report Type: 
  Country: None (occurrence: None)
  Receive Date: 20110725
  Receipt Date: 20110519
  Transmission Date: 20111222
  Serious: No
  Sender: FDA-Public Use
  Company Number: US-BRISTOL-MYERS SQUIBB COMPANY-15759871

PATIENT
  Age: 65 Year
  Sex: Male
  Weight: 109 kg

DRUGS (1)
  1. COUMADIN [Suspect]
     Dosage: 1DF:5MG - MONDAY, WEDNESDAY, FRIDAY AND 7.5MG - TUESDAY, THURSDAY, SATURDAY, SUNDAY

REACTIONS (2)
  - EAR INFECTION [None]
  - SINUSITIS [None]
